FAERS Safety Report 5317190-9 (Version None)
Quarter: 2007Q2

REPORT INFORMATION
  Report Type: 
  Country: None (occurrence: None)
  Receive Date: 20070504
  Receipt Date: 20070424
  Transmission Date: 20071010
  Serious: Yes (Other)
  Sender: FDA-Public Use
  Company Number: US-PFIZER INC-2007019699

PATIENT

DRUGS (3)
  1. GEODON [Suspect]
     Dosage: DAILY DOSE:160MG
  2. SEROQUEL [Suspect]
  3. AMBIEN [Suspect]

REACTIONS (1)
  - TARDIVE DYSKINESIA [None]
